FAERS Safety Report 7978522-6 (Version None)
Quarter: 2011Q4

REPORT INFORMATION
  Report Type: 
  Country: None (occurrence: None)
  Receive Date: 20111214
  Receipt Date: 20111203
  Transmission Date: 20120403
  Serious: Yes (Other)
  Sender: FDA-Public Use
  Company Number: US-JNJFOC-20111202336

PATIENT

DRUGS (2)
  1. REMICADE [Suspect]
     Route: 042
     Dates: start: 20020329
  2. REMICADE [Suspect]
     Indication: PRODUCT USED FOR UNKNOWN INDICATION
     Route: 042
     Dates: start: 20060604

REACTIONS (1)
  - GASTROINTESTINAL CARCINOMA [None]
